FAERS Safety Report 8790236 (Version 3)
Quarter: 2013Q1

REPORT INFORMATION
  Report Type: Report from Study
  Country: JP (occurrence: JP)
  Receive Date: 20120917
  Receipt Date: 20130116
  Transmission Date: 20140127
  Serious: Yes (Other)
  Sender: FDA-Public Use
  Company Number: JP-009507513-1209JPN004649

PATIENT
  Age: 60 Year
  Sex: Male
  Weight: 55 kg

DRUGS (9)
  1. PEGINTRON [Suspect]
     Indication: CHRONIC HEPATITIS C
     Dosage: 1.5 MICROGRAM PER KILOGRAM, QW
     Route: 058
     Dates: start: 20120220, end: 20120730
  2. REBETOL [Suspect]
     Indication: CHRONIC HEPATITIS C
     Dosage: 600 MG, QD
     Route: 048
     Dates: start: 20120220, end: 20120415
  3. REBETOL [Suspect]
     Dosage: 400 MG, QD
     Route: 048
     Dates: start: 20120416, end: 20120506
  4. REBETOL [Suspect]
     Dosage: 600 MG, QD
     Route: 048
     Dates: start: 20120507, end: 20120603
  5. REBETOL [Suspect]
     Dosage: 400 MG, QD
     Route: 048
     Dates: start: 20120604, end: 20120730
  6. TELAVIC [Suspect]
     Indication: CHRONIC HEPATITIS C
     Dosage: 2250 MG, QD
     Route: 048
     Dates: start: 20120220, end: 20120226
  7. TELAVIC [Suspect]
     Dosage: 1500 MG, QD
     Route: 048
     Dates: start: 20120227, end: 20120506
  8. GASTER D [Concomitant]
     Indication: GASTRITIS
     Dosage: 20 MG, QD, FORMULATION: POR
     Route: 048
     Dates: start: 20120220
  9. GAMOFA D [Concomitant]
     Indication: PROPHYLAXIS
     Dosage: 40 MG, QD, FORMULATION: POR
     Route: 048
     Dates: end: 20120730

REACTIONS (2)
  - Anaemia [Recovering/Resolving]
  - Haemoglobin decreased [Recovered/Resolved]
